FAERS Safety Report 7978992 (Version 4)
Quarter: 2012Q4

REPORT INFORMATION
  Report Type: Report from Study
  Country: JP (occurrence: JP)
  Receive Date: 20110607
  Receipt Date: 20120831
  Transmission Date: 20130627
  Serious: Yes (Life-Threatening, Hospitalization)
  Sender: FDA-Public Use
  Company Number: JP-UCBSA-033846

PATIENT
  Age: 24 Year
  Sex: Female
  Weight: 50.5 kg

DRUGS (11)
  1. E KEPPRA [Suspect]
     Indication: SIMPLE PARTIAL SEIZURES
     Route: 048
     Dates: start: 20110420, end: 20110510
  2. E KEPPRA [Suspect]
     Indication: COMPLEX PARTIAL SEIZURES
     Route: 048
     Dates: start: 20110420, end: 20110510
  3. PROGRAF [Concomitant]
     Indication: RASMUSSEN ENCEPHALITIS
     Dosage: DAILY DOSE: 3 MG
     Route: 048
  4. ALEVIATIN [Concomitant]
     Indication: SIMPLE PARTIAL SEIZURES
     Dosage: DAILY DOSE: 200 MG
     Route: 048
  5. ALEVIATIN [Concomitant]
     Indication: COMPLEX PARTIAL SEIZURES
     Dosage: DAILY DOSE: 200 MG
     Route: 048
  6. HYDANTOL [Concomitant]
     Indication: SIMPLE PARTIAL SEIZURES
     Dosage: DAILY DOSE: 87.5 MG
     Route: 048
  7. HYDANTOL [Concomitant]
     Indication: COMPLEX PARTIAL SEIZURES
     Dosage: DAILY DOSE: 87.5 MG
     Route: 048
  8. PHENOBAL [Concomitant]
     Indication: SIMPLE PARTIAL SEIZURES
     Dosage: DAILY DOSE: 75 MG
     Route: 048
  9. PHENOBAL [Concomitant]
     Indication: COMPLEX PARTIAL SEIZURES
     Dosage: DAILY DOSE: 75 MG
     Route: 048
  10. MINOMYCIN [Concomitant]
     Indication: RASMUSSEN ENCEPHALITIS
     Dosage: DAILY DOSE: 100 MG
     Route: 048
  11. ONON [Concomitant]
     Indication: RASMUSSEN ENCEPHALITIS
     Dosage: DAILY DOSE: 225 MG
     Route: 048

REACTIONS (1)
  - Status epilepticus [Recovered/Resolved with Sequelae]
